FAERS Safety Report 11538675 (Version 2)
Quarter: 2015Q4

REPORT INFORMATION
  Report Type: Spontaneous
  Country: FR (occurrence: FR)
  Receive Date: 20150923
  Receipt Date: 20151109
  Transmission Date: 20160304
  Serious: No
  Sender: FDA-Public Use
  Company Number: FR-AMGEN-FRASP2015097065

PATIENT
  Sex: Male
  Weight: 75 kg

DRUGS (4)
  1. MIMPARA [Suspect]
     Active Substance: CINACALCET HYDROCHLORIDE
     Indication: PRODUCT USED FOR UNKNOWN INDICATION
     Dosage: 30 MG, QD
     Route: 065
  2. OROCAL                             /00944201/ [Concomitant]
     Active Substance: CALCIUM CARBONATE
     Dosage: 500 MG, QD
  3. UN-ALFA [Concomitant]
     Active Substance: ALFACALCIDOL
     Dosage: 0.5 MUG, QD
  4. VITAMIN D                          /00107901/ [Concomitant]
     Active Substance: ERGOCALCIFEROL
     Dosage: UNK

REACTIONS (2)
  - Hypophosphataemia [Unknown]
  - Blood parathyroid hormone decreased [Unknown]
